FAERS Safety Report 12336984 (Version 1)
Quarter: 2016Q2

REPORT INFORMATION
  Report Type: Spontaneous
  Country: US (occurrence: None)
  Receive Date: 20160504
  Receipt Date: 20160504
  Transmission Date: 20160815
  Serious: Yes (Life-Threatening, Hospitalization, Disabling, Other)
  Sender: FDA-Public Use
  Company Number: None

PATIENT
  Age: 59 Year
  Sex: Male
  Weight: 102.06 kg

DRUGS (1)
  1. SIMVASTATIN LUPIN [Suspect]
     Active Substance: SIMVASTATIN
     Indication: RESPIRATORY TRACT INFECTION
     Dosage: 90 PILL 1 PER NIGHT 1 DAILY AT LEAST 5 TABLETS
     Dates: start: 20160208, end: 20160213

REACTIONS (5)
  - Gastric haemorrhage [None]
  - Abdominal pain upper [None]
  - Gastrointestinal infection [None]
  - Gastritis [None]
  - Abdominal discomfort [None]

NARRATIVE: CASE EVENT DATE: 20160212
